FAERS Safety Report 5429549-X (Version None)
Quarter: 2007Q3

REPORT INFORMATION
  Report Type: 
  Country: None (occurrence: None)
  Receive Date: 20070829
  Receipt Date: 20070821
  Transmission Date: 20080115
  Serious: Yes (Hospitalization)
  Sender: FDA-Public Use
  Company Number: FR-ASTRAZENECA-2007CG00796

PATIENT
  Age: 65 Year
  Sex: Female
  Weight: 59 kg

DRUGS (3)
  1. SYMBICORT [Suspect]
     Indication: ASTHMA
     Dosage: 320/9 ?G PER DOSE, ONE INHALATION TWICE DAILY
     Route: 055
     Dates: start: 20051201
  2. ATACAND [Concomitant]
     Indication: HYPERTENSION
     Route: 048
  3. ACETAMINOPHEN [Concomitant]
     Indication: PAIN

REACTIONS (1)
  - HAEMOPTYSIS [None]
